FAERS Safety Report 4470925-X (Version None)
Quarter: 2004Q4

REPORT INFORMATION
  Report Type: 
  Country: None (occurrence: None)
  Receive Date: 20041011
  Receipt Date: 20041004
  Transmission Date: 20050328
  Serious: Yes (Other)
  Sender: FDA-Public Use
  Company Number: IL-MERCK-0410USA00681

PATIENT
  Age: 72 Year
  Sex: Female

DRUGS (1)
  1. HYDRODIURIL [Suspect]
     Indication: HYPERTENSION
     Route: 048

REACTIONS (2)
  - CHOLESTASIS [None]
  - HEPATOTOXICITY [None]
